FAERS Safety Report 16390714 (Version 1)
Quarter: 2019Q2

REPORT INFORMATION
  Report Type: Report from Study
  Country: IT (occurrence: IT)
  Receive Date: 20190604
  Receipt Date: 20190604
  Transmission Date: 20190711
  Serious: Yes (Life-Threatening)
  Sender: FDA-Public Use
  Company Number: IT-PFIZER INC-2019233884

PATIENT
  Age: 56 Year
  Sex: Female

DRUGS (5)
  1. CALCIUM SANDOZ [CALCIUM CARBONATE;CALCIUM LACTATE GLUCONATE] [Concomitant]
     Route: 048
  2. ARANESP [Concomitant]
     Active Substance: DARBEPOETIN ALFA
     Route: 058
  3. OMEPRAZOLE. [Concomitant]
     Active Substance: OMEPRAZOLE
     Dosage: 10 MG, UNK
     Route: 048
  4. CARBOPLATINO PFIZER ITALIA [Suspect]
     Active Substance: CARBOPLATIN
     Indication: BREAST NEOPLASM
     Dosage: 160 MG, CYCLIC
     Route: 041
     Dates: start: 20180808, end: 20181204
  5. PACLITAXEL KABI [Concomitant]
     Active Substance: PACLITAXEL
     Dosage: 70 MG, UNK
     Route: 041

REACTIONS (2)
  - Dyspnoea [Recovered/Resolved]
  - Bronchospasm [Recovered/Resolved]

NARRATIVE: CASE EVENT DATE: 20181204
